FAERS Safety Report 19557905 (Version 3)
Quarter: 2021Q3

REPORT INFORMATION
  Report Type: Report from Study
  Country: US (occurrence: US)
  Receive Date: 20210716
  Receipt Date: 20210803
  Transmission Date: 20211014
  Serious: No
  Sender: FDA-Public Use
  Company Number: NVSC2021US153654

PATIENT
  Sex: Female

DRUGS (2)
  1. LASIX [Suspect]
     Active Substance: FUROSEMIDE
     Indication: PRODUCT USED FOR UNKNOWN INDICATION
     Dosage: UNK UNK, UNKNOWN
     Route: 065
  2. ENTRESTO [Suspect]
     Active Substance: SACUBITRIL\VALSARTAN
     Indication: CARDIAC FAILURE
     Dosage: 0.5 DF, BID(24/26 MG)
     Route: 048
     Dates: start: 202106

REACTIONS (9)
  - Fluid overload [Unknown]
  - Headache [Unknown]
  - Fatigue [Unknown]
  - Chest pain [Unknown]
  - Dehydration [Unknown]
  - Abdominal discomfort [Unknown]
  - Ejection fraction decreased [Unknown]
  - Product dose omission issue [Unknown]
  - Wrong technique in product usage process [Unknown]
